FAERS Safety Report 17776916 (Version 6)
Quarter: 2022Q2

REPORT INFORMATION
  Report Type: Report from Study
  Country: US (occurrence: US)
  Receive Date: 20200513
  Receipt Date: 20220506
  Transmission Date: 20220721
  Serious: Yes (Death, Hospitalization, Other)
  Sender: FDA-Public Use
  Company Number: US-ACADIA PHARMACEUTICALS INC.-ACA-2019-014187

PATIENT
  Sex: Male

DRUGS (1)
  1. NUPLAZID [Suspect]
     Active Substance: PIMAVANSERIN TARTRATE
     Indication: Parkinson^s disease
     Dosage: 34 MG, QD
     Route: 048
     Dates: start: 201907

REACTIONS (11)
  - Death [Fatal]
  - Speech disorder [Unknown]
  - Gait inability [Unknown]
  - Gallbladder rupture [Unknown]
  - Sepsis [Unknown]
  - Hallucination [Unknown]
  - Gait inability [Unknown]
  - Illness [Unknown]
  - Treatment noncompliance [Unknown]
  - Hallucination [Unknown]
  - Hallucination [Not Recovered/Not Resolved]

NARRATIVE: CASE EVENT DATE: 20190101
